FAERS Safety Report 4683679-9 (Version None)
Quarter: 2005Q2

REPORT INFORMATION
  Report Type: 
  Country: None (occurrence: None)
  Receive Date: 20050607
  Receipt Date: 20050601
  Transmission Date: 20051028
  Serious: Yes (Life-Threatening, Hospitalization)
  Sender: FDA-Public Use
  Company Number: 200511432EU

PATIENT
  Age: 50 Year
  Sex: Female

DRUGS (6)
  1. RILUZOLE [Suspect]
     Indication: HUNTINGTON'S CHOREA
     Route: 048
     Dates: start: 20050111
  2. PLACEBO [Suspect]
     Indication: HUNTINGTON'S CHOREA
     Route: 048
     Dates: start: 20010328, end: 20050111
  3. TIAPRIDEX [Concomitant]
     Indication: HUNTINGTON'S CHOREA
     Route: 048
     Dates: start: 20050329
  4. CIPRAMIL [Concomitant]
     Indication: DEPRESSION
     Route: 048
     Dates: start: 20050329
  5. EFFORTIL [Concomitant]
     Indication: HYPERTENSION
     Route: 048
     Dates: start: 20050329
  6. SOLIAN [Concomitant]
     Indication: PSYCHOTIC DISORDER
     Route: 048
     Dates: start: 20050329

REACTIONS (2)
  - DEPRESSION [None]
  - SUICIDAL IDEATION [None]
